FAERS Safety Report 9015383 (Version 1)
Quarter: 2013Q1

REPORT INFORMATION
  Report Type: Spontaneous
  Country: BR (occurrence: BR)
  Receive Date: 20130116
  Receipt Date: 20130116
  Transmission Date: 20140127
  Serious: Yes (Other)
  Sender: FDA-Public Use
  Company Number: BR-PFIZER INC-2013011041

PATIENT
  Age: 74 Year
  Sex: Female

DRUGS (3)
  1. XALACOM [Suspect]
     Indication: INTRAOCULAR PRESSURE INCREASED
     Dosage: 1 DROP EACH EYE, 1X/DAY
     Route: 047
     Dates: start: 20121004
  2. XALATAN [Suspect]
     Indication: INTRAOCULAR PRESSURE INCREASED
     Dosage: 1 DROP EACH EYE 1X/DAY
     Route: 047
     Dates: start: 20030109, end: 2005
  3. XALATAN [Suspect]
     Dosage: UNK
     Route: 047
     Dates: start: 201211

REACTIONS (7)
  - Cataract [Recovered/Resolved]
  - Intraocular pressure increased [Unknown]
  - Drug hypersensitivity [Unknown]
  - Ocular hyperaemia [Unknown]
  - Eye pruritus [Unknown]
  - Eye pain [Unknown]
  - Headache [Unknown]
